FAERS Safety Report 6069336-5 (Version None)
Quarter: 2009Q1

REPORT INFORMATION
  Report Type: 
  Country: None (occurrence: None)
  Receive Date: 20090206
  Receipt Date: 20090120
  Transmission Date: 20090719
  Serious: Yes (Other)
  Sender: FDA-Public Use
  Company Number: US-PFIZER INC-2009153349

PATIENT
  Sex: Female
  Weight: 51.247 kg

DRUGS (1)
  1. CHANTIX [Suspect]
     Indication: SMOKING CESSATION THERAPY
     Dosage: 0.5 MG, UNK
     Route: 048
     Dates: start: 20090101

REACTIONS (3)
  - INTENTIONAL SELF-INJURY [None]
  - SUICIDAL IDEATION [None]
  - WITHDRAWAL SYNDROME [None]
